FAERS Safety Report 9192916 (Version 1)
Quarter: 2013Q1

REPORT INFORMATION
  Report Type: Spontaneous
  Country: TR (occurrence: TR)
  Receive Date: 20130327
  Receipt Date: 20130327
  Transmission Date: 20140127
  Serious: Yes (Other)
  Sender: FDA-Public Use
  Company Number: PHHY2013TR028026

PATIENT
  Age: 6 Year
  Sex: Male

DRUGS (1)
  1. VANCOMYCIN [Suspect]
     Dosage: 650 MG, QID

REACTIONS (5)
  - Renal tubular necrosis [Recovered/Resolved]
  - Renal injury [Unknown]
  - Abdominal pain [Recovered/Resolved]
  - Overdose [Recovered/Resolved]
  - Incorrect dose administered [Unknown]
